FAERS Safety Report 25710100 (Version 1)
Quarter: 2025Q3

REPORT INFORMATION
  Report Type: Spontaneous
  Country: GB (occurrence: GB)
  Receive Date: 20250821
  Receipt Date: 20250821
  Transmission Date: 20251021
  Serious: Yes (Other)
  Sender: RANBAXY
  Company Number: GB-SUN PHARMACEUTICAL INDUSTRIES LTD-2025RR-522825

PATIENT
  Age: 19 Year
  Weight: 64 kg

DRUGS (2)
  1. TESTOSTERONE [Suspect]
     Active Substance: TESTOSTERONE
     Indication: Adverse drug reaction
     Route: 065
     Dates: start: 20250801
  2. PROPRANOLOL [Concomitant]
     Active Substance: PROPRANOLOL HYDROCHLORIDE
     Indication: Anxiety disorder
     Route: 065

REACTIONS (2)
  - Medication error [Unknown]
  - Dizziness [Unknown]

NARRATIVE: CASE EVENT DATE: 20250801
